FAERS Safety Report 4424788-9 (Version None)
Quarter: 2004Q3

REPORT INFORMATION
  Report Type: 
  Country: None (occurrence: None)
  Receive Date: 20040719
  Receipt Date: 20040218
  Transmission Date: 20050211
  Serious: Yes (Hospitalization)
  Sender: FDA-Public Use
  Company Number: 192792

PATIENT
  Age: 56 Year
  Sex: Female
  Weight: 52.1637 kg

DRUGS (6)
  1. AVONEX [Suspect]
     Indication: MULTIPLE SCLEROSIS
     Dosage: 30 MCG QW IM
     Route: 030
     Dates: start: 20000101, end: 20031201
  2. AVONEX [Suspect]
     Indication: MULTIPLE SCLEROSIS
     Dosage: 30 MCG QW IM
     Route: 030
     Dates: start: 20031201
  3. PREDNISONE [Concomitant]
  4. BACLOFEN [Concomitant]
  5. FOXAMAX [Concomitant]
  6. COUMADIN [Concomitant]

REACTIONS (2)
  - BACK PAIN [None]
  - URINARY TRACT INFECTION [None]
